FAERS Safety Report 24313582 (Version 1)
Quarter: 2024Q3

REPORT INFORMATION
  Report Type: Spontaneous
  Country: US (occurrence: US)
  Receive Date: 20240912
  Receipt Date: 20240912
  Transmission Date: 20241016
  Serious: Yes (Life-Threatening)
  Sender: OTSUKA
  Company Number: US-OTSUKA-2024_025338

PATIENT
  Sex: Female

DRUGS (1)
  1. REXULTI [Suspect]
     Active Substance: BREXPIPRAZOLE
     Indication: Major depression
     Dosage: 0.5 MG, QD (1 TABLET EVERY NIGHT)
     Route: 048
     Dates: start: 20240801, end: 20240808

REACTIONS (5)
  - Chromaturia [Recovered/Resolved]
  - Dehydration [Recovered/Resolved]
  - Flank pain [Recovered/Resolved]
  - Back pain [Recovered/Resolved]
  - Urinary tract infection [Recovered/Resolved]
